FAERS Safety Report 11836005 (Version 1)
Quarter: 2015Q4

REPORT INFORMATION
  Report Type: Spontaneous
  Country: US (occurrence: US)
  Receive Date: 20151215
  Receipt Date: 20151215
  Transmission Date: 20160305
  Serious: No
  Sender: FDA-Public Use
  Company Number: US-WATSON-2015-18596

PATIENT
  Sex: Male

DRUGS (1)
  1. HYDROCORTISONE (AMALLC) [Suspect]
     Active Substance: HYDROCORTISONE
     Indication: PRODUCT USED FOR UNKNOWN INDICATION
     Dosage: UNK %, UNKNOWN
     Route: 061

REACTIONS (1)
  - Drug ineffective [Unknown]
